FAERS Safety Report 6494340-2 (Version None)
Quarter: 2009Q4

REPORT INFORMATION
  Report Type: 
  Country: None (occurrence: None)
  Receive Date: 20091214
  Receipt Date: 20090227
  Transmission Date: 20100525
  Serious: No
  Sender: FDA-Public Use
  Company Number: US-BRISTOL-MYERS SQUIBB COMPANY-14499933

PATIENT
  Age: 23 Year
  Sex: Female

DRUGS (4)
  1. ABILIFY [Suspect]
     Indication: BIPOLAR I DISORDER
     Dosage: DOSE REDUCED TO 10 MG
  2. LAMICTAL [Concomitant]
  3. DEPAKOTE [Concomitant]
  4. WELLBUTRIN [Concomitant]

REACTIONS (2)
  - LIBIDO DISORDER [None]
  - TREMOR [None]
